FAERS Safety Report 8854542 (Version 4)
Quarter: 2013Q2

REPORT INFORMATION
  Report Type: Spontaneous
  Country: US (occurrence: US)
  Receive Date: 20121023
  Receipt Date: 20130401
  Transmission Date: 20140414
  Serious: Yes (Hospitalization, Other)
  Sender: FDA-Public Use
  Company Number: US-009507513-1202USA04372

PATIENT
  Sex: Female

DRUGS (5)
  1. FOSAMAX [Suspect]
     Indication: OSTEOPENIA
     Dosage: 10 MG, UNK
     Route: 048
     Dates: start: 1997, end: 1999
  2. FOSAMAX [Suspect]
     Dosage: 70 MG, QW
     Route: 048
     Dates: start: 1999, end: 2008
  3. FOSAMAX [Suspect]
     Dosage: 10 UNK, UNK
     Route: 048
     Dates: start: 1999, end: 2008
  4. ALENDRONATE SODIUM [Suspect]
     Indication: OSTEOPENIA
     Dosage: 70 MG, QW
     Route: 048
     Dates: start: 200808, end: 20110330
  5. SYNTHROID [Concomitant]
     Indication: HYPOTHYROIDISM
     Dosage: 88 MICROGRAM, QD
     Dates: start: 1962

REACTIONS (34)
  - Femur fracture [Recovered/Resolved]
  - Intramedullary rod insertion [Unknown]
  - Radius fracture [Unknown]
  - Open reduction of fracture [Unknown]
  - Bone graft [Unknown]
  - Deep vein thrombosis [Recovered/Resolved]
  - Peptic ulcer [Unknown]
  - Renal failure acute [Unknown]
  - Carpal tunnel decompression [Unknown]
  - Low turnover osteopathy [Unknown]
  - Sleep disorder [Unknown]
  - Secondary hypertension [Unknown]
  - Vascular calcification [Unknown]
  - Leukocytosis [Unknown]
  - Hypoglycaemia [Unknown]
  - Hypokalaemia [Not Recovered/Not Resolved]
  - Anxiety [Unknown]
  - Sleep apnoea syndrome [Unknown]
  - Blood cholesterol increased [Unknown]
  - Haemoglobin decreased [Unknown]
  - Uterine dilation and curettage [Unknown]
  - Haematocrit decreased [Unknown]
  - Fatigue [Unknown]
  - Medical device removal [Unknown]
  - Osteoarthritis [Unknown]
  - Hypertension [Unknown]
  - Anaemia [Unknown]
  - Osteoporosis [Unknown]
  - Oedema peripheral [Not Recovered/Not Resolved]
  - Hypocalcaemia [Unknown]
  - Nausea [Unknown]
  - Constipation [Recovered/Resolved]
  - Gastrooesophageal reflux disease [Unknown]
  - Dyspepsia [Unknown]
